FAERS Safety Report 5300396-2 (Version None)
Quarter: 2007Q2

REPORT INFORMATION
  Report Type: 
  Country: None (occurrence: None)
  Receive Date: 20070413
  Receipt Date: 20070413
  Transmission Date: 20071010
  Serious: No
  Sender: FDA-Public Use
  Company Number: None

PATIENT
  Age: 17 Day
  Sex: Male

DRUGS (2)
  1. INSULIN [Suspect]
  2. NEONATAL TPN (SEE INFO ON CAPS BELOW) [Suspect]
     Dosage: 227 MLS/BAG
     Dates: start: 20070328, end: 20070328

REACTIONS (3)
  - DRUG DISPENSING ERROR [None]
  - HYPOGLYCAEMIA [None]
  - WRONG DRUG ADMINISTERED [None]
